FAERS Safety Report 5427697-1 (Version None)
Quarter: 2007Q3

REPORT INFORMATION
  Report Type: 
  Country: None (occurrence: None)
  Receive Date: 20070828
  Receipt Date: 20070817
  Transmission Date: 20080115
  Serious: Yes (Congenital Anomaly)
  Sender: FDA-Public Use
  Company Number: US-ROCHE-513180

PATIENT
  Sex: Female
  Weight: 9.2 kg

DRUGS (8)
  1. SAQUINAVIR [Suspect]
     Indication: DRUG USE FOR UNKNOWN INDICATION
  2. NELFINAVIR [Suspect]
     Indication: DRUG USE FOR UNKNOWN INDICATION
  3. ABACAVIR [Suspect]
     Indication: DRUG USE FOR UNKNOWN INDICATION
  4. 1 OTHER SUSPECTED DRUG [Suspect]
     Indication: DRUG USE FOR UNKNOWN INDICATION
     Dosage: DRUG NAME REPORTED AS DDL.
  5. 3TC [Suspect]
     Indication: DRUG USE FOR UNKNOWN INDICATION
  6. NEVIRAPINE [Suspect]
     Indication: DRUG USE FOR UNKNOWN INDICATION
  7. AZT [Suspect]
     Indication: DRUG USE FOR UNKNOWN INDICATION
  8. GLUCOCORTICOID NOS [Concomitant]

REACTIONS (1)
  - JOINT DISLOCATION [None]
